FAERS Safety Report 15170882 (Version 3)
Quarter: 2018Q3

REPORT INFORMATION
  Report Type: Spontaneous
  Country: US (occurrence: US)
  Receive Date: 20180720
  Receipt Date: 20180823
  Transmission Date: 20181010
  Serious: Yes (Other)
  Sender: FDA-Public Use
  Company Number: US-BAYER-2018-133165

PATIENT
  Age: 43 Year
  Sex: Female

DRUGS (6)
  1. OPSUMIT [Suspect]
     Active Substance: MACITENTAN
     Indication: PRODUCT USED FOR UNKNOWN INDICATION
  2. ADEMPAS [Suspect]
     Active Substance: RIOCIGUAT
     Indication: PRODUCT USED FOR UNKNOWN INDICATION
     Dosage: 2 MG, TID
  3. FLOLAN [Suspect]
     Active Substance: EPOPROSTENOL SODIUM
     Indication: PULMONARY ARTERIAL HYPERTENSION
     Dosage: 36.7 DF, NG/KG/MIN, CONCENTRATION 30.000 NG/ML, PUMP RATE 86 ML/DAY, VIAL STRENGTH 1.5 MG
  4. ADEMPAS [Suspect]
     Active Substance: RIOCIGUAT
     Indication: PRODUCT USED FOR UNKNOWN INDICATION
     Dosage: 1.5 MG, TID
  5. FLOLAN [Suspect]
     Active Substance: EPOPROSTENOL SODIUM
     Indication: PULMONARY ARTERIAL HYPERTENSION
     Dosage: 36.7 DF, NG/KG/MIN, CONCENTRATION 30.000 NG/ML, PUMP RATE 86 ML/DAY, VIAL STRENGTH 1.5 MG
     Dates: start: 20120703, end: 20160801
  6. ADEMPAS [Suspect]
     Active Substance: RIOCIGUAT
     Indication: PRODUCT USED FOR UNKNOWN INDICATION
     Dosage: 2.5 MG, TID

REACTIONS (10)
  - Musculoskeletal chest pain [Unknown]
  - Gastrointestinal disorder [Recovering/Resolving]
  - Nausea [Recovering/Resolving]
  - Dizziness [Recovering/Resolving]
  - Diarrhoea [Recovering/Resolving]
  - Abdominal discomfort [Unknown]
  - Abdominal pain upper [Unknown]
  - Hypopnoea [Unknown]
  - Malaise [Unknown]
  - Vomiting [Recovering/Resolving]
